FAERS Safety Report 23766923 (Version 1)
Quarter: 2024Q2

REPORT INFORMATION
  Report Type: Spontaneous
  Country: PL (occurrence: PL)
  Receive Date: 20240422
  Receipt Date: 20240422
  Transmission Date: 20240716
  Serious: Yes (Life-Threatening, Hospitalization)
  Sender: FDA-Public Use
  Company Number: PL-RECORDATI-2024002724

PATIENT

DRUGS (15)
  1. OSILODROSTAT [Suspect]
     Active Substance: OSILODROSTAT
     Indication: Cushing^s syndrome
     Dosage: 1 MILLIGRAM, BID
     Dates: start: 20211130, end: 20211201
  2. OSILODROSTAT [Suspect]
     Active Substance: OSILODROSTAT
     Indication: Adrenal adenoma
     Dosage: 3 MG/DAY
     Dates: start: 20211202, end: 20211203
  3. OSILODROSTAT [Suspect]
     Active Substance: OSILODROSTAT
     Dosage: 4 MG/DAY
     Dates: start: 20211204, end: 20211205
  4. OSILODROSTAT [Suspect]
     Active Substance: OSILODROSTAT
     Dosage: 5 MG/DAY
     Dates: start: 20211206, end: 20211207
  5. OSILODROSTAT [Suspect]
     Active Substance: OSILODROSTAT
     Dosage: 6 MG/DAY
     Dates: start: 20211208, end: 202112
  6. OSILODROSTAT [Suspect]
     Active Substance: OSILODROSTAT
     Dosage: 6 MG/DAY
     Dates: start: 20211227, end: 202112
  7. OSILODROSTAT [Suspect]
     Active Substance: OSILODROSTAT
     Dosage: 8 MG/DAY
     Dates: start: 20211231
  8. OSILODROSTAT [Suspect]
     Active Substance: OSILODROSTAT
     Dosage: 10 MG/DAY
     Dates: start: 20220103, end: 20220104
  9. OSILODROSTAT [Suspect]
     Active Substance: OSILODROSTAT
     Dosage: 15 MG/DAY
     Dates: start: 20220105, end: 20220106
  10. OSILODROSTAT [Suspect]
     Active Substance: OSILODROSTAT
     Dosage: 20 MG/DAY
     Dates: start: 20220107, end: 202201
  11. OSILODROSTAT [Suspect]
     Active Substance: OSILODROSTAT
     Dosage: 25 MG/DAY
     Dates: start: 20220110, end: 20220111
  12. OSILODROSTAT [Suspect]
     Active Substance: OSILODROSTAT
     Dosage: 30 MG/DAY
     Dates: start: 20220112, end: 202201
  13. OSILODROSTAT [Suspect]
     Active Substance: OSILODROSTAT
     Dosage: 35 MG/DAY
     Dates: start: 20220115, end: 202201
  14. OSILODROSTAT [Suspect]
     Active Substance: OSILODROSTAT
     Dosage: 40 MG/DAY
     Dates: start: 20220119, end: 202201
  15. OSILODROSTAT [Suspect]
     Active Substance: OSILODROSTAT
     Dosage: 45 MG/ DAY
     Dates: start: 20220123

REACTIONS (2)
  - Hyperadrenocorticism [Recovered/Resolved]
  - Disease progression [Recovered/Resolved]

NARRATIVE: CASE EVENT DATE: 20211201
